FAERS Safety Report 23598904 (Version 1)
Quarter: 2024Q1

REPORT INFORMATION
  Report Type: Spontaneous
  Country: BG (occurrence: BG)
  Receive Date: 20240306
  Receipt Date: 20240306
  Transmission Date: 20240409
  Serious: Yes (Congenital Anomaly, Other)
  Sender: FDA-Public Use
  Company Number: BG-Zentiva-2024-ZT-003654

PATIENT
  Sex: Female
  Weight: 2.12 kg

DRUGS (1)
  1. VALSARTAN [Suspect]
     Active Substance: VALSARTAN
     Indication: Foetal exposure during pregnancy
     Dosage: UNK
     Route: 065

REACTIONS (9)
  - Asphyxia [Unknown]
  - Acute kidney injury [Unknown]
  - Respiratory distress [Unknown]
  - Pulmonary arterial hypertension [Unknown]
  - Anuria [Unknown]
  - Ureteral disorder [Unknown]
  - Oedema [Unknown]
  - Urinary tract disorder [Unknown]
  - Foetal exposure during pregnancy [Unknown]
